FAERS Safety Report 9723728 (Version 2)
Quarter: 2014Q2

REPORT INFORMATION
  Report Type: Spontaneous
  Country: US (occurrence: US)
  Receive Date: 20131202
  Receipt Date: 20140612
  Transmission Date: 20141212
  Serious: Yes (Other)
  Sender: FDA-Public Use
  Company Number: US-PFIZER INC-2013338749

PATIENT
  Age: 49 Year
  Sex: Female
  Weight: 77.1 kg

DRUGS (3)
  1. LIPITOR [Suspect]
     Indication: LOW DENSITY LIPOPROTEIN INCREASED
     Dosage: UNK, AS DIRECTED
     Route: 048
     Dates: start: 201001
  2. LIPITOR [Suspect]
     Indication: CARDIOVASCULAR EVENT PROPHYLAXIS
  3. CADUET [Concomitant]
     Indication: BLOOD CHOLESTEROL INCREASED
     Dosage: 5/10 MG
     Dates: start: 201001, end: 201205

REACTIONS (1)
  - Type 2 diabetes mellitus [Not Recovered/Not Resolved]
